FAERS Safety Report 6649034-7 (Version None)
Quarter: 2010Q1

REPORT INFORMATION
  Report Type: 
  Country: None (occurrence: None)
  Receive Date: 20100309
  Receipt Date: 20091228
  Transmission Date: 20100710
  Serious: No
  Sender: FDA-Public Use
  Company Number: 2010SP000388

PATIENT
  Age: 39 Year
  Sex: Female
  Weight: 92.0802 kg

DRUGS (2)
  1. SAPHRIS [Suspect]
     Indication: BIPOLAR DISORDER
     Dosage: 5 MG ; BID ;
     Dates: start: 20090101
  2. SAPHRIS [Suspect]
     Indication: DEPRESSION
     Dosage: 5 MG ; BID ;
     Dates: start: 20090101

REACTIONS (5)
  - ANOSMIA [None]
  - DYSGEUSIA [None]
  - DYSPNOEA [None]
  - FLUID RETENTION [None]
  - OEDEMA PERIPHERAL [None]
